FAERS Safety Report 5034725-4 (Version None)
Quarter: 2006Q2

REPORT INFORMATION
  Report Type: 
  Country: None (occurrence: None)
  Receive Date: 20060621
  Receipt Date: 20060511
  Transmission Date: 20061013
  Serious: Yes (Hospitalization)
  Sender: FDA-Public Use
  Company Number: ES200606003161

PATIENT
  Age: 58 Year
  Sex: Female

DRUGS (2)
  1. CYMBALTA [Suspect]
     Indication: FIBROMYALGIA
     Dosage: 60 MG, DAILY (1/D), ORAL
     Route: 048
     Dates: start: 20060429, end: 20060430
  2. TRYPTIZOL (AMITRIPTYLINE HYDROCHLORIDE) [Concomitant]

REACTIONS (6)
  - HYPERTENSION [None]
  - NAUSEA [None]
  - TACHYCARDIA [None]
  - THANATOPHOBIA [None]
  - TREMOR [None]
  - VOMITING [None]
